FAERS Safety Report 6369350-6 (Version None)
Quarter: 2009Q3

REPORT INFORMATION
  Report Type: 
  Country: None (occurrence: None)
  Receive Date: 20090917
  Receipt Date: 20090901
  Transmission Date: 20100115
  Serious: Yes (Other)
  Sender: FDA-Public Use
  Company Number: B0592757B

PATIENT
  Sex: Female

DRUGS (12)
  1. ROSIGLITAZONE MALEATE [Suspect]
     Indication: TYPE 2 DIABETES MELLITUS
     Dosage: TRANSPLACENTARY
     Route: 064
  2. ASPIRIN [Suspect]
     Dosage: TRANSPLACENTARY
     Route: 064
  3. EXENATIDE (FORMULATION UNKNOWN) (EXANATIDE) [Suspect]
     Dosage: TRANSPLACENTARY
     Route: 064
  4. METFORMIN HCL [Suspect]
     Dosage: TRANSPLACENTARY
     Route: 064
  5. INT. LONG-ACTING INSULIN (FORMULATION UNKNOWN (INT. LONG-ACTING INSULI [Suspect]
     Dosage: TRANSPLACENTARY
     Route: 064
  6. FOSINOPRIL SODIUM [Suspect]
     Dosage: TRANSPLACENTARY
     Route: 064
  7. METOPROLOL TARTRATE [Suspect]
     Dosage: TRANSPLACENTARY
     Route: 064
  8. ATORVASTATIN CALCIUM [Suspect]
     Dosage: TRANSPLACENTARY
     Route: 064
  9. NITROFURANTOIN [Suspect]
     Indication: URINARY TRACT INFECTION
     Dosage: TRANSPLACENTARY
     Route: 064
  10. INSULIN LISPRO (FORMUATION UNKNOWN) (INSULIN LISPRO) [Suspect]
     Dosage: TRANSPLACENTARY
     Route: 064
  11. MAGNESIUM SULFATE [Suspect]
     Dosage: TRANSPLACENTARY
     Route: 064
  12. ANTIBIOTICS (FORMULATION UNKNOWN) [Suspect]
     Dosage: TRANSPLACENTARY
     Route: 064

REACTIONS (7)
  - APGAR SCORE LOW [None]
  - CAESAREAN SECTION [None]
  - ENCEPHALOPATHY NEONATAL [None]
  - ESCHERICHIA SEPSIS [None]
  - MATERNAL DRUGS AFFECTING FOETUS [None]
  - PREGNANCY [None]
  - SEPSIS NEONATAL [None]
